FAERS Safety Report 6263436-2 (Version None)
Quarter: 2009Q3

REPORT INFORMATION
  Report Type: 
  Country: None (occurrence: None)
  Receive Date: 20090710
  Receipt Date: 20090205
  Transmission Date: 20100115
  Serious: No
  Sender: FDA-Public Use
  Company Number: A0767159A

PATIENT
  Age: 60 Year
  Sex: Female

DRUGS (6)
  1. FLOVENT [Suspect]
     Indication: EMPHYSEMA
     Dosage: 3PUFF TWICE PER DAY
     Route: 055
  2. SALMETEROL XINAFOATE [Suspect]
  3. LEVOTHYROXINE SODIUM [Concomitant]
  4. WELLBUTRIN [Concomitant]
  5. NAPROXEN [Concomitant]
  6. VITAMIN [Concomitant]

REACTIONS (3)
  - DRUG INEFFECTIVE [None]
  - HEADACHE [None]
  - HYPERTENSION [None]
